FAERS Safety Report 21900575 (Version 2)
Quarter: 2023Q1

REPORT INFORMATION
  Report Type: Report from Study
  Country: FI (occurrence: FI)
  Receive Date: 20230123
  Receipt Date: 20230125
  Transmission Date: 20230417
  Serious: Yes (Other)
  Sender: FDA-Public Use
  Company Number: FI-009507513-2208FIN005256

PATIENT
  Age: 75 Year
  Sex: Male
  Weight: 59.8 kg

DRUGS (11)
  1. BELZUTIFAN [Suspect]
     Active Substance: BELZUTIFAN
     Indication: Clear cell renal cell carcinoma
     Dosage: STARTING DOSE: 120 MILLIGRAM, QD (FLUCTUATED DOSAGE)
     Route: 048
     Dates: start: 20211201, end: 20220809
  2. BELZUTIFAN [Suspect]
     Active Substance: BELZUTIFAN
     Dosage: 80 MILLIGRAM, QD
     Route: 048
     Dates: start: 20220831, end: 20220904
  3. PEMBROLIZUMAB [Suspect]
     Active Substance: PEMBROLIZUMAB
     Indication: Clear cell renal cell carcinoma
     Dosage: 400 MILLIGRAM, EVERY 6 WEEKS
     Route: 042
     Dates: start: 20211201, end: 20220406
  4. LENVATINIB MESYLATE [Suspect]
     Active Substance: LENVATINIB MESYLATE
     Indication: Clear cell renal cell carcinoma
     Dosage: STARTING DOSE: 20 MILLIGRAM, QD (FLUCTUATED DOSAGE)
     Route: 048
     Dates: start: 20211201, end: 20220809
  5. LENVATINIB MESYLATE [Suspect]
     Active Substance: LENVATINIB MESYLATE
     Dosage: 10 MILLIGRAM, QD
     Route: 048
     Dates: start: 20220831, end: 20220904
  6. RAMIPRIL [Concomitant]
     Active Substance: RAMIPRIL
     Indication: Chest pain
     Dosage: [6]  2.5 MG DAILY, FREQ: QD
     Route: 048
     Dates: start: 20211108
  7. BISOPROLOL [Concomitant]
     Active Substance: BISOPROLOL
     Indication: Chest pain
     Dosage: [7]  2.5 MG DAILY, FREQ: QD
     Route: 048
     Dates: start: 20211108
  8. PANTOPRAZOLE SODIUM [Concomitant]
     Active Substance: PANTOPRAZOLE SODIUM
     Indication: Gastrooesophageal reflux disease
     Dosage: [10]  40 MG DAILY, FREQ: QD
     Route: 048
     Dates: start: 20211122
  9. ATORVASTATIN [Concomitant]
     Active Substance: ATORVASTATIN
     Indication: Lipid metabolism disorder
     Dosage: [8]  40 MG DAILY, FREQ: QD
     Route: 048
     Dates: start: 202111, end: 20220921
  10. ACETAMINOPHEN [Concomitant]
     Active Substance: ACETAMINOPHEN
     Indication: Arthralgia
     Dosage: [40]  1 G DAILY, FREQ: QD
     Route: 048
     Dates: start: 20220803, end: 20220809
  11. MONITABS [Concomitant]
     Indication: Vitamin supplementation
     Dosage: 1 TABLET, QD
     Route: 048
     Dates: start: 202111, end: 20220921

REACTIONS (2)
  - Cholangitis [Recovered/Resolved]
  - Cholangitis [Recovered/Resolved]

NARRATIVE: CASE EVENT DATE: 20220810
